FAERS Safety Report 9023320 (Version 1)
Quarter: 2013Q1

REPORT INFORMATION
  Report Type: Spontaneous
  Country: US (occurrence: US)
  Receive Date: 20130119
  Receipt Date: 20130119
  Transmission Date: 20140127
  Serious: Yes (Death, Hospitalization, Other)
  Sender: FDA-Public Use
  Company Number: US-UCBSA-075433

PATIENT
  Age: 49 Year
  Sex: Male

DRUGS (6)
  1. OMEPRAZOLE [Suspect]
     Route: 048
  2. VALPROIC ACID [Suspect]
     Route: 048
  3. CLONAZEPAM [Suspect]
     Route: 048
  4. HALOPERIDOL [Suspect]
     Route: 048
  5. LAMOTRIGINE [Suspect]
     Route: 048
  6. ATENOLOL [Suspect]
     Route: 048

REACTIONS (1)
  - Completed suicide [Fatal]
